FAERS Safety Report 13641532 (Version 1)
Quarter: 2017Q2

REPORT INFORMATION
  Report Type: Spontaneous
  Country: US (occurrence: US)
  Receive Date: 20170612
  Receipt Date: 20170612
  Transmission Date: 20170830
  Serious: Yes (Other)
  Sender: FDA-Public Use
  Company Number: US-JNJFOC-20170607104

PATIENT
  Age: 70 Year
  Sex: Male

DRUGS (16)
  1. ANASTROZOLE. [Concomitant]
     Active Substance: ANASTROZOLE
     Route: 065
  2. ESTRADIOL. [Concomitant]
     Active Substance: ESTRADIOL
     Route: 065
  3. VITAMIN D3 [Concomitant]
     Active Substance: CHOLECALCIFEROL
     Route: 065
  4. XGEVA [Concomitant]
     Active Substance: DENOSUMAB
     Route: 065
  5. PREDNISONE. [Concomitant]
     Active Substance: PREDNISONE
     Route: 065
  6. PRAVASTATIN SODIUM. [Concomitant]
     Active Substance: PRAVASTATIN SODIUM
     Route: 065
  7. OMEPRAZOLE. [Concomitant]
     Active Substance: OMEPRAZOLE
     Route: 065
  8. ZYTIGA [Suspect]
     Active Substance: ABIRATERONE ACETATE
     Indication: PROSTATE CANCER
     Route: 048
  9. CABERGOLINE. [Concomitant]
     Active Substance: CABERGOLINE
     Route: 065
  10. METFORMIN HYDROCHLORIDE. [Concomitant]
     Active Substance: METFORMIN HYDROCHLORIDE
     Route: 065
  11. CALCIUM [Concomitant]
     Active Substance: CALCIUM
     Route: 065
  12. LORAZEPAM. [Concomitant]
     Active Substance: LORAZEPAM
     Route: 065
  13. FIRMAGON [Concomitant]
     Active Substance: DEGARELIX ACETATE
     Route: 065
  14. IBUPROFEN. [Concomitant]
     Active Substance: IBUPROFEN
     Route: 065
  15. DUTASTERIDE. [Concomitant]
     Active Substance: DUTASTERIDE
     Route: 065
  16. GABAPENTIN. [Concomitant]
     Active Substance: GABAPENTIN
     Route: 065

REACTIONS (5)
  - Chest X-ray abnormal [Unknown]
  - Faeces soft [Unknown]
  - Viral upper respiratory tract infection [Unknown]
  - Hernia [Unknown]
  - Depression [Unknown]
